FAERS Safety Report 17073528 (Version 1)
Quarter: 2019Q4

REPORT INFORMATION
  Report Type: Spontaneous
  Country: CN (occurrence: CN)
  Receive Date: 20191126
  Receipt Date: 20191126
  Transmission Date: 20200122
  Serious: Yes (Other)
  Sender: FDA-Public Use
  Company Number: CN-BAXTER-2019BAX023555

PATIENT
  Age: 7 Year
  Sex: Female
  Weight: 24 kg

DRUGS (24)
  1. 0.9% SODIUM CHLORIDE INJECTION [Suspect]
     Active Substance: SODIUM CHLORIDE
     Dosage: DOSE RE-INTRODUCED, CYTARABINE INJECTION + DEXAMETHASONE INJECTION + 0.9% SODIUM CHLORIDE
     Route: 037
  2. 5% GLUCOSE  INJECTION [Suspect]
     Active Substance: DEXTROSE
     Dosage: THIRD CHEMOTHERAPY, SEQUENTIAL THERAPY, CYTARABINE INJECTION 0.047G + 5% GLUCOSE
     Route: 041
     Dates: start: 20191002, end: 20191009
  3. ENDOXAN [Suspect]
     Active Substance: CYCLOPHOSPHAMIDE
     Dosage: DOSE RE-INTRODUCED, CYCLOPHOSPHAMIDE + 0.9% SODIUM CHLORIDE INJECTION
     Route: 041
  4. 0.9% SODIUM CHLORIDE INJECTION [Suspect]
     Active Substance: SODIUM CHLORIDE
     Dosage: THIRD CHEMOTHERAPY, SEQUENTIAL THERAPY, CYTARABINE 0.035G+DEXAMETHASONE 2.5MG +0.9% SODIUM CHLORIDE
     Route: 037
     Dates: start: 20191002, end: 20191002
  5. DEXAMETHASONE SODIUM PHOSPHATE. [Suspect]
     Active Substance: DEXAMETHASONE SODIUM PHOSPHATE
     Dosage: DOSE RE-INTRODUCED, CYTARABINE + DEXAMETHASONE + 0.9% SODIUM CHLORIDE
     Route: 037
  6. 5% GLUCOSE  INJECTION [Suspect]
     Active Substance: DEXTROSE
     Indication: MEDICATION DILUTION
     Dosage: FIRST AND SECOND TIME CHEMOTHERAPIES, CYTARABINE 0.047G + 5% GLUCOSE INJECTION
     Route: 041
  7. ENDOXAN [Suspect]
     Active Substance: CYCLOPHOSPHAMIDE
     Dosage: THIRD CHEMOTHERAPY, SEQUENTIAL THERAPY, CYCLOPHOSPHAMIDE + 0.9% SODIUM CHLORIDE INJECTION 250ML
     Route: 041
     Dates: start: 20191002, end: 20191002
  8. 0.9% SODIUM CHLORIDE INJECTION [Suspect]
     Active Substance: SODIUM CHLORIDE
     Dosage: THIRD CHEMOTHERAPY, SEQUENTIAL THERAPY, CYCLOPHOSPHAMIDE INJECTION 0.94G + 0.9% SODIUM CHLORIDE
     Route: 041
     Dates: start: 20191002, end: 20191002
  9. MERCAPTOPURINE. [Suspect]
     Active Substance: MERCAPTOPURINE
     Indication: ACUTE LYMPHOCYTIC LEUKAEMIA
     Dosage: TABLET, FIRST AND SECOND CHEMOTHERAPIES
     Route: 048
  10. MERCAPTOPURINE. [Suspect]
     Active Substance: MERCAPTOPURINE
     Dosage: TABLET, THIRD CHEMOTHERAPY, SEQUENTIAL THERAPY
     Route: 048
     Dates: start: 20191002, end: 20191009
  11. CYTARABINE HYDROCHLORIDE [Suspect]
     Active Substance: CYTARABINE HYDROCHLORIDE
     Indication: ACUTE LYMPHOCYTIC LEUKAEMIA
     Dosage: FIRST AND SECOND CHEMOTHERAPIES, CYTARABINE + 5% GLUCOSE INJECTION
     Route: 041
  12. CYTOSAR [Suspect]
     Active Substance: CYTARABINE
     Indication: ACUTE LYMPHOCYTIC LEUKAEMIA
     Dosage: FIRST AND SECOND CHEMOTHERAPIES, CYTARABINE + DEXAMETHASONE + 0.9% SODIUM CHLORIDE
     Route: 037
  13. CYTOSAR [Suspect]
     Active Substance: CYTARABINE
     Dosage: THIRD CHEMOTHERAPY, SEQUENTIAL THERAPY, CYTARABINE + DEXAMETHASONE 2.5 MG + 0.9% SODIUM CHLORIDE 3ML
     Route: 037
     Dates: start: 20191002, end: 20191002
  14. CYTARABINE HYDROCHLORIDE [Suspect]
     Active Substance: CYTARABINE HYDROCHLORIDE
     Dosage: DOSE RE-INTRODUCED, CYTARABINE + 5% GLUCOSE INJECTION
     Route: 041
  15. ENDOXAN [Suspect]
     Active Substance: CYCLOPHOSPHAMIDE
     Indication: ACUTE LYMPHOCYTIC LEUKAEMIA
     Dosage: FIRST AND SECOND TIME CHEMOTHERAPIES, CYCLOPHOSPHAMIDE + 0.9% SODIUM CHLORIDE INJECTION
     Route: 041
  16. 0.9% SODIUM CHLORIDE INJECTION [Suspect]
     Active Substance: SODIUM CHLORIDE
     Indication: MEDICATION DILUTION
     Dosage: FIRST AND SECOND TIME CHEMOTHERAPY, CYCLOPHOSPHAMIDE INJECTION + 0.9% SODIUM CHLORIDE
     Route: 041
  17. 0.9% SODIUM CHLORIDE INJECTION [Suspect]
     Active Substance: SODIUM CHLORIDE
     Dosage: DOSE RE-INTRODUCED, CYCLOPHOSPHAMIDE INJECTION + 0.9% SODIUM CHLORIDE
     Route: 041
  18. DEXAMETHASONE SODIUM PHOSPHATE. [Suspect]
     Active Substance: DEXAMETHASONE SODIUM PHOSPHATE
     Dosage: THIRD CHEMOTHERAPY, SEQUENTIAL THERAPY, CYTARABINE 0.035G +DEXAMETHASONE + 0.9% SODIUM CHLORIDE 3ML
     Route: 037
     Dates: start: 20191002, end: 20191002
  19. CYTOSAR [Suspect]
     Active Substance: CYTARABINE
     Dosage: DOSE RE-INTRODUCED, CYTARABINE + DEXAMETHASONE + 0.9% SODIUM CHLORIDE
     Route: 037
  20. 0.9% SODIUM CHLORIDE INJECTION [Suspect]
     Active Substance: SODIUM CHLORIDE
     Dosage: FIRST AND SECOND CHEMOTHERAPIES, CYTARABINE INJECTION + DEXAMETHASONE + 0.9% SODIUM CHLORIDE
     Route: 037
  21. 5% GLUCOSE  INJECTION [Suspect]
     Active Substance: DEXTROSE
     Dosage: DOSE RE-INTRODUCED, CYTARABINE INJECTION + 5% GLUCOSE
     Route: 041
  22. DEXAMETHASONE SODIUM PHOSPHATE. [Suspect]
     Active Substance: DEXAMETHASONE SODIUM PHOSPHATE
     Indication: ACUTE LYMPHOCYTIC LEUKAEMIA
     Dosage: FIRST AND SECOND CHEMOTHERAPIES, CYTARABINE + DEXAMETHASONE + 0.9% SODIUM CHLORIDE
     Route: 037
  23. MERCAPTOPURINE. [Suspect]
     Active Substance: MERCAPTOPURINE
     Dosage: TABLET, DOSE RE-INTRODUCED
     Route: 048
  24. CYTARABINE HYDROCHLORIDE [Suspect]
     Active Substance: CYTARABINE HYDROCHLORIDE
     Dosage: THIRD CHEMOTHERAPY, SEQUENTIAL THERAPY, CYTARABINE + 5% GLUCOSE INJECTION 100ML
     Route: 041
     Dates: start: 20191002, end: 20191009

REACTIONS (1)
  - Bone marrow failure [Recovering/Resolving]

NARRATIVE: CASE EVENT DATE: 20191010
